FAERS Safety Report 8156243-7 (Version None)
Quarter: 2012Q1

REPORT INFORMATION
  Report Type: 
  Country: None (occurrence: None)
  Receive Date: 20120222
  Receipt Date: 20120217
  Transmission Date: 20120608
  Serious: Yes (Other)
  Sender: FDA-Public Use
  Company Number: US-PFIZER INC-2012043650

PATIENT
  Sex: Male
  Weight: 123 kg

DRUGS (5)
  1. GABAPENTIN [Suspect]
     Dosage: UNK
  2. CYMBALTA [Concomitant]
     Indication: PAIN
     Dosage: 60 MG, 2X/DAY
  3. METFORMIN [Concomitant]
     Indication: DIABETES MELLITUS
     Dosage: UNK
  4. INSULIN [Concomitant]
     Indication: DIABETES MELLITUS
     Dosage: UNK
  5. LYRICA [Suspect]
     Indication: NEUROPATHY PERIPHERAL
     Dosage: 75 MG, 2X/DAY
     Route: 048
     Dates: start: 20070201

REACTIONS (2)
  - PAIN [None]
  - LIMB DISCOMFORT [None]
